FAERS Safety Report 14665897 (Version 1)
Quarter: 2018Q1

REPORT INFORMATION
  Report Type: Spontaneous
  Country: US (occurrence: US)
  Receive Date: 20180321
  Receipt Date: 20180321
  Transmission Date: 20180509
  Serious: Yes (Death, Hospitalization)
  Sender: FDA-Public Use
  Company Number: PHHY2018US040583

PATIENT
  Age: 64 Year
  Sex: Male

DRUGS (1)
  1. VANCOMYCIN [Suspect]
     Active Substance: VANCOMYCIN
     Indication: DEVICE RELATED INFECTION
     Route: 065

REACTIONS (5)
  - Pyrexia [Fatal]
  - Drug reaction with eosinophilia and systemic symptoms [Fatal]
  - Asthenia [Fatal]
  - Rash [Fatal]
  - Diarrhoea [Fatal]
